FAERS Safety Report 9181148 (Version 2)
Quarter: 2013Q1

REPORT INFORMATION
  Report Type: Spontaneous
  Country: US (occurrence: US)
  Receive Date: 20130322
  Receipt Date: 20130322
  Transmission Date: 20140127
  Serious: No
  Sender: FDA-Public Use
  Company Number: US-MYLANLABS-2012S1009225

PATIENT
  Age: 39 Year
  Sex: Male
  Weight: 79.38 kg

DRUGS (5)
  1. EMSAM [Suspect]
     Indication: DEPRESSION
     Route: 062
     Dates: start: 20120214, end: 20120217
  2. ADDERALL [Concomitant]
  3. XANAX [Concomitant]
  4. LAMOTRIGINE [Concomitant]
  5. COUMADIN [Concomitant]

REACTIONS (1)
  - Suicidal ideation [Not Recovered/Not Resolved]
